FAERS Safety Report 4273474-7 (Version None)
Quarter: 2004Q1

REPORT INFORMATION
  Report Type: 
  Country: None (occurrence: None)
  Receive Date: 20040114
  Receipt Date: 20040102
  Transmission Date: 20041129
  Serious: Yes (Hospitalization)
  Sender: FDA-Public Use
  Company Number: 2004-DE-00007GD (0)

PATIENT
  Age: 59 Year
  Sex: Male

DRUGS (2)
  1. PREDNISONE [Suspect]
     Indication: PROPHYLAXIS AGAINST TRANSPLANT REJECTION
     Dosage: 10 MG EVERY OTHER DAY
  2. CYCLOSPORINE A (CYCLOSPORIN) [Suspect]
     Indication: PROPHYLAXIS AGAINST TRANSPLANT REJECTION
     Dosage: 75 MG

REACTIONS (9)
  - ABDOMINAL PAIN UPPER [None]
  - COMPLICATIONS OF TRANSPLANT SURGERY [None]
  - CONGENITAL CYSTIC KIDNEY DISEASE [None]
  - HAEMODIALYSIS [None]
  - HEPATIC CYST [None]
  - KIDNEY TRANSPLANT REJECTION [None]
  - RENAL CELL CARCINOMA STAGE I [None]
  - RENAL CYST [None]
  - RENAL MASS [None]
